FAERS Safety Report 11759899 (Version 1)
Quarter: 2015Q4

REPORT INFORMATION
  Report Type: Spontaneous
  Country: US (occurrence: US)
  Receive Date: 20151120
  Receipt Date: 20151120
  Transmission Date: 20160304
  Serious: No
  Sender: FDA-Public Use
  Company Number: US-ELI_LILLY_AND_COMPANY-US201210003010

PATIENT
  Age: 47 Year
  Sex: Female

DRUGS (1)
  1. FORTEO [Suspect]
     Active Substance: TERIPARATIDE
     Indication: OSTEOPOROSIS
     Dosage: 20 UG, QD

REACTIONS (6)
  - Smear cervix abnormal [Unknown]
  - Muscle spasms [Unknown]
  - Adverse event [Unknown]
  - Gait disturbance [Unknown]
  - Anxiety [Unknown]
  - Affective disorder [Unknown]

NARRATIVE: CASE EVENT DATE: 201210
